FAERS Safety Report 9284737 (Version 3)
Quarter: 2013Q3

REPORT INFORMATION
  Report Type: Report from Study
  Country: CH (occurrence: CH)
  Receive Date: 20130513
  Receipt Date: 20130808
  Transmission Date: 20140515
  Serious: Yes (Hospitalization)
  Sender: FDA-Public Use
  Company Number: CH-BIOGENIDEC-2013BI041387

PATIENT
  Age: 45 Year
  Sex: Female
  Weight: 52 kg

DRUGS (2)
  1. BG00012 [Suspect]
     Indication: MULTIPLE SCLEROSIS
     Route: 048
     Dates: start: 20101026
  2. L-THYROXIN [Concomitant]
     Indication: AUTOIMMUNE THYROIDITIS
     Route: 048

REACTIONS (2)
  - Sinusitis bacterial [Recovered/Resolved]
  - Hyperthyroidism [Recovered/Resolved]
